FAERS Safety Report 24417505 (Version 1)
Quarter: 2024Q4

REPORT INFORMATION
  Report Type: Spontaneous
  Country: US (occurrence: None)
  Receive Date: 20241009
  Receipt Date: 20241009
  Transmission Date: 20250115
  Serious: No
  Sender: Public
  Company Number: None

PATIENT
  Age: 21 Year
  Sex: Male
  Weight: 95.25 kg

DRUGS (1)
  1. ADBRY [Suspect]
     Active Substance: TRALOKINUMAB-LDRM
     Indication: Dermatitis atopic
     Route: 058
     Dates: start: 20240626

REACTIONS (5)
  - Eczema [None]
  - Injection site bruising [None]
  - Injection site swelling [None]
  - Injection site pruritus [None]
  - Injection site urticaria [None]
